FAERS Safety Report 4494069-6 (Version None)
Quarter: 2004Q4

REPORT INFORMATION
  Report Type: 
  Country: None (occurrence: None)
  Receive Date: 20041103
  Receipt Date: 20041103
  Transmission Date: 20050328
  Serious: Yes (Other)
  Sender: FDA-Public Use
  Company Number: None

PATIENT
  Age: 57 Year
  Sex: Female
  Weight: 90.2658 kg

DRUGS (2)
  1. TOPROL-XL [Suspect]
     Indication: HYPERTENSION
     Dosage: 50 MG
     Dates: start: 20040722, end: 20040804
  2. TOPROL-XL [Suspect]
     Dosage: 200 MG
     Dates: start: 20040805, end: 20041008

REACTIONS (2)
  - DYSPHAGIA [None]
  - NEOPLASM [None]
